FAERS Safety Report 4775949-0 (Version None)
Quarter: 2005Q3

REPORT INFORMATION
  Report Type: 
  Country: None (occurrence: None)
  Receive Date: 20050922
  Receipt Date: 20050829
  Transmission Date: 20060218
  Serious: Yes (Life-Threatening, Disabling)
  Sender: FDA-Public Use
  Company Number: NL-GLAXOSMITHKLINE-B0392802A

PATIENT
  Age: 30 Year
  Sex: Female

DRUGS (3)
  1. PAROXETINE HCL [Suspect]
     Indication: DEPRESSION
     Dosage: 20MG PER DAY
     Route: 065
     Dates: start: 20010923, end: 20020301
  2. ALCOHOL [Suspect]
  3. NO CONCURRENT MEDICATION [Concomitant]

REACTIONS (9)
  - DEPRESSION [None]
  - DISTURBANCE IN SOCIAL BEHAVIOUR [None]
  - DRUG INTERACTION [None]
  - HYPERKINESIA [None]
  - LIBIDO DECREASED [None]
  - NIGHT SWEATS [None]
  - PSYCHOTIC DISORDER [None]
  - SUICIDAL IDEATION [None]
  - TIC [None]
